FAERS Safety Report 8727239 (Version 3)
Quarter: 2016Q3

REPORT INFORMATION
  Report Type: Spontaneous
  Country: US (occurrence: US)
  Receive Date: 20120816
  Receipt Date: 20160827
  Transmission Date: 20161109
  Serious: Yes (Other)
  Sender: FDA-Public Use
  Company Number: US-ASTRAZENECA-2012SE55606

PATIENT
  Age: 4829 Week
  Sex: Female
  Weight: 54.4 kg

DRUGS (6)
  1. CRESTOR [Suspect]
     Active Substance: ROSUVASTATIN CALCIUM
     Indication: BLOOD CHOLESTEROL INCREASED
     Route: 048
  2. CRESTOR [Suspect]
     Active Substance: ROSUVASTATIN CALCIUM
     Indication: BLOOD CHOLESTEROL INCREASED
     Route: 048
  3. CRESTOR [Suspect]
     Active Substance: ROSUVASTATIN CALCIUM
     Indication: BLOOD CHOLESTEROL INCREASED
     Route: 048
  4. MULTI VITAMIN [Concomitant]
     Active Substance: VITAMINS
     Indication: ILL-DEFINED DISORDER
     Dosage: DAILY
     Route: 048
  5. ASACOL [Concomitant]
     Active Substance: MESALAMINE
     Indication: ILL-DEFINED DISORDER
     Dosage: DAILY
     Route: 048
  6. FISH OIL [Concomitant]
     Active Substance: FISH OIL
     Dosage: DAILY
     Route: 048

REACTIONS (5)
  - Nasopharyngitis [Unknown]
  - Malaise [Unknown]
  - Body height decreased [Unknown]
  - Upper limb fracture [Unknown]
  - Injury [Unknown]

NARRATIVE: CASE EVENT DATE: 20120705
